FAERS Safety Report 16819826 (Version 1)
Quarter: 2019Q3

REPORT INFORMATION
  Report Type: Spontaneous
  Country: AR (occurrence: AR)
  Receive Date: 20190917
  Receipt Date: 20190917
  Transmission Date: 20191005
  Serious: Yes (Death, Hospitalization)
  Sender: FDA-Public Use
  Company Number: PHHY2019AR216100

PATIENT
  Age: 68 Year
  Sex: Female

DRUGS (3)
  1. VILDAGLIPTIN [Suspect]
     Active Substance: VILDAGLIPTIN
     Indication: TYPE 2 DIABETES MELLITUS
     Dosage: 50 MG, UNK
     Route: 065
  2. METFORMIN [Suspect]
     Active Substance: METFORMIN HYDROCHLORIDE
     Indication: TYPE 2 DIABETES MELLITUS
     Dosage: 850 MG, UNK
     Route: 065
  3. GLICLAZIDE [Suspect]
     Active Substance: GLICLAZIDE
     Indication: TYPE 2 DIABETES MELLITUS
     Dosage: 60 MG, UNK
     Route: 065

REACTIONS (10)
  - Haemodynamic instability [Fatal]
  - Shock [Fatal]
  - Asthenia [Unknown]
  - Sepsis [Fatal]
  - Sinus tachycardia [Unknown]
  - Palpitations [Unknown]
  - Metabolic acidosis [Fatal]
  - Respiratory failure [Fatal]
  - Distributive shock [Fatal]
  - Dyspnoea [Unknown]
